FAERS Safety Report 8857398 (Version 3)
Quarter: 2012Q4

REPORT INFORMATION
  Report Type: 
  Country: US (occurrence: US)
  Receive Date: 20121024
  Receipt Date: 20121206
  Transmission Date: 20130627
  Serious: No
  Sender: FDA-Public Use
  Company Number: US-009507513-1210USA001074

PATIENT
  Sex: Female

DRUGS (3)
  1. PEG-INTRON [Suspect]
     Indication: HEPATITIS C
     Dosage: Redipen
     Route: 058
     Dates: start: 20120905
  2. RIBAVIRIN [Suspect]
     Indication: HEPATITIS C
     Dosage: UNK
     Route: 048
     Dates: start: 20120905
  3. TELAPREVIR [Suspect]
     Indication: HEPATITIS C
     Dosage: UNK
     Route: 048
     Dates: start: 20120905, end: 20121123

REACTIONS (6)
  - Injection site reaction [Unknown]
  - Pruritus [Unknown]
  - Infection [Unknown]
  - Dry skin [Unknown]
  - Diarrhoea [Recovered/Resolved]
  - Hypoaesthesia [Unknown]
